FAERS Safety Report 9688451 (Version 1)
Quarter: 2013Q4

REPORT INFORMATION
  Report Type: Spontaneous
  Country: US (occurrence: None)
  Receive Date: 20131112
  Receipt Date: 20131112
  Transmission Date: 20140711
  Serious: Yes (Other)
  Sender: FDA-Public Use
  Company Number: 1269797

PATIENT
  Sex: Male

DRUGS (1)
  1. NOSTRILLA [Suspect]
     Indication: NASAL CONGESTION
     Dosage: SPRAYED NASALLY NOS

REACTIONS (5)
  - Nasal mucosal disorder [None]
  - Burning sensation mucosal [None]
  - Flushing [None]
  - Nasal discomfort [None]
  - Product quality issue [None]
